FAERS Safety Report 18314794 (Version 1)
Quarter: 2020Q3

REPORT INFORMATION
  Report Type: Spontaneous
  Country: US (occurrence: US)
  Receive Date: 20200925
  Receipt Date: 20200925
  Transmission Date: 20201103
  Serious: Yes (Hospitalization)
  Sender: FDA-Public Use
  Company Number: US-BTGSP-US-BTGSP-20-0142

PATIENT
  Age: 64 Year
  Sex: Male

DRUGS (1)
  1. CROFAB [Suspect]
     Active Substance: CROTALIDAE POLYVALENT IMMUNE FAB (OVINE)
     Indication: SNAKE BITE
     Dosage: 10 VIALS, SINGLE
     Route: 042

REACTIONS (4)
  - Erythema [Unknown]
  - Skin necrosis [Unknown]
  - Skin graft [Unknown]
  - Contusion [Unknown]
